FAERS Safety Report 9369792 (Version 1)
Quarter: 2013Q2

REPORT INFORMATION
  Report Type: Spontaneous
  Country: FR (occurrence: FR)
  Receive Date: 20130626
  Receipt Date: 20130626
  Transmission Date: 20140414
  Serious: Yes (Death, Other)
  Sender: FDA-Public Use
  Company Number: FR-JNJFOC-20130609620

PATIENT
  Sex: 0

DRUGS (6)
  1. DOXORUBICIN [Suspect]
     Indication: DIFFUSE LARGE B-CELL LYMPHOMA
     Route: 042
  2. CYCLOPHOSPHAMIDE [Suspect]
     Indication: DIFFUSE LARGE B-CELL LYMPHOMA
     Route: 065
  3. VINCRISTINE [Suspect]
     Indication: DIFFUSE LARGE B-CELL LYMPHOMA
     Route: 065
  4. PREDNISONE [Suspect]
     Indication: DIFFUSE LARGE B-CELL LYMPHOMA
     Dosage: ON DAYS 1 TO 5
     Route: 065
  5. RITUXIMAB [Suspect]
     Indication: DIFFUSE LARGE B-CELL LYMPHOMA
     Dosage: ON DAY 1 OF EACH OF THE 8 CYCLES
     Route: 065
  6. GRANULOCYTE COLONY STIMULATING FACTOR [Concomitant]
     Indication: PALLIATIVE CARE
     Route: 065

REACTIONS (17)
  - Death [Fatal]
  - Toxicity to various agents [Fatal]
  - Adverse event [Fatal]
  - Lymphoma [Fatal]
  - Neoplasm malignant [Fatal]
  - Infection [Fatal]
  - Colon neoplasm [Unknown]
  - Metastasis [Unknown]
  - Diffuse large B-cell lymphoma [Unknown]
  - Lung neoplasm [Unknown]
  - Acute myeloid leukaemia [Unknown]
  - Neoplasm prostate [Unknown]
  - Breast neoplasm [Unknown]
  - Bladder neoplasm [Unknown]
  - Myelodysplastic syndrome [Unknown]
  - Diffuse large B-cell lymphoma recurrent [Unknown]
  - Drug effect incomplete [Unknown]
